FAERS Safety Report 5051064-6 (Version None)
Quarter: 2006Q3

REPORT INFORMATION
  Report Type: 
  Country: None (occurrence: None)
  Receive Date: 20060714
  Receipt Date: 20060524
  Transmission Date: 20061208
  Serious: Yes (Hospitalization)
  Sender: FDA-Public Use
  Company Number: PHBS2006AT07842

PATIENT
  Age: 59 Year
  Sex: Female

DRUGS (5)
  1. ISOPTIN [Concomitant]
     Dosage: 80 MG, TID
     Route: 048
     Dates: start: 20060116
  2. URBASON [Concomitant]
     Dosage: 10 MG, QD
     Route: 048
  3. PANTOPRAZOLE SODIUM [Concomitant]
     Dosage: 40 MG, QD
     Route: 048
     Dates: start: 20060116
  4. TEGRETOL [Suspect]
     Indication: NEURALGIA
     Dosage: 200 MG, QD
     Route: 048
     Dates: start: 20060227, end: 20060301
  5. TEGRETOL [Suspect]
     Dosage: 200 MG, BID
     Route: 048
     Dates: start: 20060301

REACTIONS (4)
  - EAR PAIN [None]
  - HYPOACUSIS [None]
  - OTITIS MEDIA [None]
  - OTOSCLEROSIS [None]
